FAERS Safety Report 4993687-6 (Version None)
Quarter: 2006Q2

REPORT INFORMATION
  Report Type: 
  Country: None (occurrence: None)
  Receive Date: 20060505
  Receipt Date: 20060426
  Transmission Date: 20061013
  Serious: Yes (Death)
  Sender: FDA-Public Use
  Company Number: US-MERCK-0604USA03924

PATIENT
  Age: 41 Year
  Sex: Female

DRUGS (2)
  1. DECADRON [Suspect]
     Indication: MULTIPLE SCLEROSIS
     Route: 048
     Dates: start: 19960101
  2. HYDROCODONE BITARTRATE [Concomitant]
     Indication: PAIN
     Route: 065

REACTIONS (7)
  - ABDOMINAL INJURY [None]
  - CARDIAC ARREST [None]
  - CIRCULATORY COLLAPSE [None]
  - INTESTINAL ISCHAEMIA [None]
  - INTESTINAL OBSTRUCTION [None]
  - SEPSIS [None]
  - WOUND INFECTION PSEUDOMONAS [None]
